FAERS Safety Report 14794184 (Version 1)
Quarter: 2018Q2

REPORT INFORMATION
  Report Type: Spontaneous
  Country: GB (occurrence: GB)
  Receive Date: 20180423
  Receipt Date: 20180423
  Transmission Date: 20180711
  Serious: Yes (Other)
  Sender: FDA-Public Use
  Company Number: GB-GILEAD-2018-0334377

PATIENT
  Age: 64 Year
  Sex: Male

DRUGS (2)
  1. RANOLAZINE. [Suspect]
     Active Substance: RANOLAZINE
     Indication: PRODUCT USED FOR UNKNOWN INDICATION
     Dosage: UNK
     Route: 065
  2. FIDAXOMICIN [Interacting]
     Active Substance: FIDAXOMICIN
     Indication: CLOSTRIDIUM DIFFICILE INFECTION
     Route: 065

REACTIONS (2)
  - Drug interaction [Recovered/Resolved]
  - Vomiting [Recovered/Resolved]
